FAERS Safety Report 9298336 (Version 1)
Quarter: 2013Q2

REPORT INFORMATION
  Report Type: Spontaneous
  Country: ES (occurrence: ES)
  Receive Date: 20130520
  Receipt Date: 20130520
  Transmission Date: 20140414
  Serious: Yes (Hospitalization)
  Sender: FDA-Public Use
  Company Number: PHHY2013ES048011

PATIENT
  Sex: 0

DRUGS (4)
  1. SODIUM CHLORIDE SANDOZ [Suspect]
  2. HYDROGEN PEROXIDE [Concomitant]
  3. EPHEDRINE [Concomitant]
  4. HYDROCORTISONE [Concomitant]

REACTIONS (2)
  - Depressed level of consciousness [Recovered/Resolved]
  - Hypernatraemia [Recovered/Resolved]
